FAERS Safety Report 7485724-4 (Version None)
Quarter: 2011Q2

REPORT INFORMATION
  Report Type: 
  Country: None (occurrence: None)
  Receive Date: 20110517
  Receipt Date: 20110506
  Transmission Date: 20111010
  Serious: Yes (Hospitalization)
  Sender: FDA-Public Use
  Company Number: FR-MERCK-1105USA01793

PATIENT
  Age: 75 Year
  Sex: Female

DRUGS (9)
  1. PROPRANOLOL [Suspect]
     Indication: HYPERTENSION
     Route: 048
     Dates: end: 20101215
  2. GLUCOVANCE [Concomitant]
     Route: 065
  3. CALTRATE VITAMINE D3 [Concomitant]
     Route: 065
  4. NEXIUM [Concomitant]
     Route: 065
  5. COZAAR [Concomitant]
     Indication: HYPERTENSION
     Route: 048
  6. ACTONEL [Concomitant]
     Route: 065
  7. COSOPT [Suspect]
     Indication: GLAUCOMA
     Route: 047
     Dates: end: 20101013
  8. EXELON [Suspect]
     Indication: DEMENTIA ALZHEIMER'S TYPE
     Route: 061
     Dates: start: 20090106
  9. FORLAX [Concomitant]
     Route: 065

REACTIONS (2)
  - FEMORAL NECK FRACTURE [None]
  - BRADYCARDIA [None]
